FAERS Safety Report 24380779 (Version 1)
Quarter: 2024Q3

REPORT INFORMATION
  Report Type: Report from Study
  Country: IT (occurrence: IT)
  Receive Date: 20240930
  Receipt Date: 20240930
  Transmission Date: 20241017
  Serious: Yes (Death)
  Sender: MYLAN
  Company Number: IT-UCBSA-2024043971

PATIENT
  Sex: Male

DRUGS (2)
  1. LEVETIRACETAM [Suspect]
     Active Substance: LEVETIRACETAM
     Indication: Product used for unknown indication
     Dosage: 2000 MILLIGRAM, QD (1000 MILLIGRAM, 2X/DAY (BID)
     Route: 065
     Dates: start: 202104
  2. VIMPAT [Suspect]
     Active Substance: LACOSAMIDE
     Indication: Product used for unknown indication
     Dosage: 200 MILLIGRAM, QD (100 MILLIGRAM, 2X/DAY (BID)
     Route: 065
     Dates: start: 202104, end: 20240817

REACTIONS (3)
  - Renal failure [Fatal]
  - Dysphagia [Unknown]
  - Bronchitis [Unknown]

NARRATIVE: CASE EVENT DATE: 20240701
